FAERS Safety Report 6038062-0 (Version None)
Quarter: 2009Q1

REPORT INFORMATION
  Report Type: 
  Country: None (occurrence: None)
  Receive Date: 20090115
  Receipt Date: 20090108
  Transmission Date: 20090719
  Serious: Yes (Hospitalization)
  Sender: FDA-Public Use
  Company Number: US-BIOGENIDEC-2005BI008989

PATIENT
  Age: 60 Year
  Sex: Female
  Weight: 51 kg

DRUGS (8)
  1. AVONEX [Suspect]
     Indication: MULTIPLE SCLEROSIS
     Route: 030
     Dates: start: 20020621, end: 20030801
  2. AVONEX [Suspect]
     Route: 030
     Dates: start: 20030801
  3. OXYTROL [Concomitant]
     Indication: INCONTINENCE
  4. VITAMIN B-12 [Concomitant]
     Indication: MULTIPLE SCLEROSIS
     Dates: start: 19750101
  5. MICABID [Concomitant]
     Indication: MULTIPLE SCLEROSIS
     Dates: start: 19750101
  6. TRAMADOL HCL [Concomitant]
     Indication: OSTEOARTHRITIS
  7. FOSAMAX [Concomitant]
     Indication: OSTEOPOROSIS
  8. ZOLEDRONIC ACID [Concomitant]
     Indication: OSTEOPOROSIS

REACTIONS (9)
  - ARTHRALGIA [None]
  - ARTHRITIS [None]
  - ASTHENIA [None]
  - ENDOMETRIOSIS [None]
  - FOOT FRACTURE [None]
  - GASTRIC HYPOMOTILITY [None]
  - HAEMORRHOIDS [None]
  - HYPERTENSION [None]
  - RESTLESS LEGS SYNDROME [None]
